FAERS Safety Report 19830233 (Version 1)
Quarter: 2021Q3

REPORT INFORMATION
  Report Type: Spontaneous
  Country: US (occurrence: US)
  Receive Date: 20210915
  Receipt Date: 20210915
  Transmission Date: 20211014
  Serious: Yes (Other)
  Sender: FDA-Public Use
  Company Number: US-CIPLA (EU) LIMITED-2021US06176

PATIENT

DRUGS (2)
  1. SALBUTAMOL [Suspect]
     Active Substance: ALBUTEROL
     Indication: CHRONIC OBSTRUCTIVE PULMONARY DISEASE
     Dosage: UNK, PRN
     Route: 065
     Dates: start: 202108
  2. DULERA [Concomitant]
     Active Substance: FORMOTEROL FUMARATE DIHYDRATE\MOMETASONE FUROATE
     Indication: PRODUCT USED FOR UNKNOWN INDICATION
     Dosage: UNK, BID (ONCE IN MORNING AND ONCE AT NIGHT)
     Route: 065

REACTIONS (5)
  - Dry mouth [Unknown]
  - Drug ineffective [Unknown]
  - Insomnia [Unknown]
  - Dyspnoea [Unknown]
  - Product substitution issue [Unknown]

NARRATIVE: CASE EVENT DATE: 2021
